FAERS Safety Report 8426667 (Version 4)
Quarter: 2019Q4

REPORT INFORMATION
  Report Type: Spontaneous
  Country: BR (occurrence: BR)
  Receive Date: 20120227
  Receipt Date: 20191130
  Transmission Date: 20200122
  Serious: Yes (Hospitalization, Other)
  Sender: FDA-Public Use
  Company Number: BR-AMGEN-BRASP2012008023

PATIENT
  Age: 38 Year
  Sex: Female
  Weight: 76 kg

DRUGS (11)
  1. ENBREL [Suspect]
     Active Substance: ETANERCEPT
     Indication: PSORIATIC ARTHROPATHY
     Dosage: 50 MILLIGRAM, UNK
     Route: 065
     Dates: end: 201904
  2. DICLIN [Concomitant]
     Indication: CONTRACEPTION
     Dosage: UNK
  3. ENBREL [Suspect]
     Active Substance: ETANERCEPT
     Indication: PSORIASIS
     Dosage: 50 MILLIGRAM, ONCE WEEKLY
     Route: 058
     Dates: start: 201110, end: 201201
  4. BUSCOPAN [Concomitant]
     Active Substance: BUTYLSCOPOLAMINE BROMIDE
     Dosage: UNK
  5. DICLIN [Concomitant]
     Dosage: UNK
  6. ENBREL [Suspect]
     Active Substance: ETANERCEPT
     Dosage: UNK
     Route: 065
     Dates: start: 201109, end: 201110
  7. ENBREL [Suspect]
     Active Substance: ETANERCEPT
     Indication: ARTHRITIS
     Dosage: 50 MG, UNK
     Route: 065
     Dates: start: 20081030
  8. ENBREL [Suspect]
     Active Substance: ETANERCEPT
     Dosage: 50 MILLIGRAM, ONCE WEEKLY
     Route: 058
     Dates: start: 201909
  9. ENBREL [Suspect]
     Active Substance: ETANERCEPT
     Dosage: 50 MG, ONCE WEEKLY
     Route: 058
     Dates: start: 201908
  10. ENBREL [Concomitant]
     Active Substance: ETANERCEPT
     Indication: PSORIATIC ARTHROPATHY
     Dosage: UNK
     Dates: start: 201109, end: 201110
  11. BUSCOPAN [Concomitant]
     Active Substance: BUTYLSCOPOLAMINE BROMIDE
     Dosage: UNK

REACTIONS (14)
  - Injection site pain [Unknown]
  - Nausea [Unknown]
  - Pre-existing condition improved [Unknown]
  - Injection site pruritus [Unknown]
  - Injection site warmth [Unknown]
  - Chikungunya virus infection [Recovered/Resolved]
  - Cholelithiasis [Unknown]
  - Cough [Unknown]
  - Viral infection [Unknown]
  - Vomiting [Unknown]
  - Rhinitis [Unknown]
  - Injection site erythema [Unknown]
  - Tooth fracture [Unknown]
  - Therapeutic response unexpected [Unknown]

NARRATIVE: CASE EVENT DATE: 201201
